FAERS Safety Report 19962695 (Version 1)
Quarter: 2021Q4

REPORT INFORMATION
  Report Type: Spontaneous
  Country: US (occurrence: US)
  Receive Date: 20211016
  Receipt Date: 20211016
  Transmission Date: 20220303
  Serious: Yes (Other)
  Sender: FDA-Public Use
  Company Number: None

PATIENT
  Age: 60 Year
  Sex: Male
  Weight: 77.1 kg

DRUGS (2)
  1. BAMLANIVIMAB [Suspect]
     Active Substance: BAMLANIVIMAB
     Indication: COVID-19
     Dosage: ?          OTHER FREQUENCY:ONCE;
     Route: 040
  2. ETESEVIMAB [Suspect]
     Active Substance: ETESEVIMAB
     Dosage: ?          OTHER FREQUENCY:ONCE;
     Route: 040

REACTIONS (4)
  - Erythema [None]
  - Tachycardia [None]
  - Hyperhidrosis [None]
  - Infusion related reaction [None]

NARRATIVE: CASE EVENT DATE: 20211016
